FAERS Safety Report 5809005-7 (Version None)
Quarter: 2008Q3

REPORT INFORMATION
  Report Type: 
  Country: None (occurrence: None)
  Receive Date: 20080714
  Receipt Date: 20080707
  Transmission Date: 20090109
  Serious: Yes (Other)
  Sender: FDA-Public Use
  Company Number: US-JNJFOC-20080305599

PATIENT
  Sex: Female
  Weight: 29.48 kg

DRUGS (4)
  1. RISPERDAL [Suspect]
     Indication: MOOD SWINGS
     Route: 048
  2. RISPERDAL [Suspect]
     Indication: AGGRESSION
     Route: 048
  3. RISPERDAL [Suspect]
     Indication: BIPOLAR DISORDER
     Dosage: AT NIGHT
  4. CLONIDINE [Concomitant]
     Indication: BIPOLAR DISORDER
     Dosage: AT NIGHT

REACTIONS (1)
  - STREPTOCOCCAL INFECTION [None]
